FAERS Safety Report 25276266 (Version 1)
Quarter: 2025Q2

REPORT INFORMATION
  Report Type: Spontaneous
  Country: US (occurrence: US)
  Receive Date: 20250507
  Receipt Date: 20250507
  Transmission Date: 20250717
  Serious: No
  Sender: AUROBINDO
  Company Number: US-AUROBINDO-AUR-APL-2024-063035

PATIENT
  Sex: Male

DRUGS (1)
  1. HYDROCORTISONE [Suspect]
     Active Substance: HYDROCORTISONE
     Indication: Primary adrenal insufficiency
     Route: 065
     Dates: start: 20241120

REACTIONS (3)
  - Product substitution issue [Unknown]
  - Product taste abnormal [Unknown]
  - Product lot number issue [Unknown]

NARRATIVE: CASE EVENT DATE: 20241120
